FAERS Safety Report 4384047-X (Version None)
Quarter: 2004Q2

REPORT INFORMATION
  Report Type: 
  Country: None (occurrence: None)
  Receive Date: 20040602
  Receipt Date: 20040524
  Transmission Date: 20050107
  Serious: Yes (Other)
  Sender: FDA-Public Use
  Company Number: 200410230BFR

PATIENT
  Age: 33 Month
  Sex: Male
  Weight: 20 kg

DRUGS (6)
  1. KOGENATE FS [Suspect]
     Indication: FACTOR VIII DEFICIENCY
     Dosage: SEE IMAGE
  2. KOGENATE FS [Suspect]
  3. KOGENATE FS [Suspect]
  4. KOGENATE FS [Suspect]
  5. KOGENATE FS [Suspect]
  6. KOGENATE FS [Suspect]

REACTIONS (8)
  - ARTHRALGIA [None]
  - COAGULATION FACTOR VIII LEVEL DECREASED [None]
  - DRUG INEFFECTIVE [None]
  - HAEMARTHROSIS [None]
  - HAEMATOMA [None]
  - MEDICATION ERROR [None]
  - PAIN IN EXTREMITY [None]
  - PHARMACEUTICAL PRODUCT COMPLAINT [None]
